FAERS Safety Report 11068551 (Version 1)
Quarter: 2015Q2

REPORT INFORMATION
  Report Type: Spontaneous
  Country: US (occurrence: None)
  Receive Date: 20150424
  Receipt Date: 20150424
  Transmission Date: 20150821
  Serious: No
  Sender: FDA-Public Use
  Company Number: None

PATIENT
  Age: 67 Year
  Sex: Female

DRUGS (1)
  1. CAPECITABINE 500MG TEVA [Suspect]
     Active Substance: CAPECITABINE
     Indication: PANCREATIC CARCINOMA
     Dosage: FOR 14 DAYS ON 7 DAYS
     Route: 048
     Dates: start: 20150127, end: 20150415

REACTIONS (2)
  - Therapy cessation [None]
  - Platelet count decreased [None]

NARRATIVE: CASE EVENT DATE: 20150415
